FAERS Safety Report 5893922-6 (Version None)
Quarter: 2008Q3

REPORT INFORMATION
  Report Type: 
  Country: None (occurrence: None)
  Receive Date: 20080923
  Receipt Date: 20080912
  Transmission Date: 20090109
  Serious: Yes (Other)
  Sender: FDA-Public Use
  Company Number: US-ELI_LILLY_AND_COMPANY-US200808006446

PATIENT
  Age: 43 Year
  Sex: Female
  Weight: 151.47 kg

DRUGS (10)
  1. BYETTA [Suspect]
     Indication: TYPE 2 DIABETES MELLITUS
     Dosage: 5 UG, 2/D
     Route: 058
     Dates: start: 20080812, end: 20080818
  2. METFORMIN HCL [Concomitant]
     Indication: TYPE 2 DIABETES MELLITUS
  3. ASPIRIN [Concomitant]
     Indication: PROPHYLAXIS
     Dosage: 81 MG, DAILY (1/D)
     Route: 048
     Dates: start: 20080320
  4. NEURONTIN [Concomitant]
     Indication: PAIN
     Dosage: 300 MG, UNK
     Dates: start: 20080623
  5. NOVOLOG [Concomitant]
     Indication: DIABETES MELLITUS
     Dosage: 59 U, 3/D
     Dates: start: 20080320
  6. LEVEMIR [Concomitant]
     Indication: DIABETES MELLITUS
     Dosage: 94 U, EACH MORNING
     Dates: start: 20080320
  7. LEVEMIR [Concomitant]
     Dosage: 24 U, EACH EVENING
     Dates: start: 20080320
  8. LISINOPRIL [Concomitant]
     Indication: BLOOD PRESSURE
     Dosage: 40 MG, DAILY (1/D)
     Dates: start: 20080320
  9. TYLENOL (CAPLET) [Concomitant]
     Indication: PAIN
     Dosage: 1500 MG, EACH EVENING
     Dates: start: 20080320
  10. ZOLPIDEM [Concomitant]
     Indication: INSOMNIA
     Dosage: 10 MG, AS NEEDED
     Dates: start: 20080320

REACTIONS (6)
  - BLOOD GLUCOSE INCREASED [None]
  - BLOOD POTASSIUM INCREASED [None]
  - BLOOD UREA INCREASED [None]
  - DIARRHOEA [None]
  - PANCREATITIS [None]
  - WEIGHT DECREASED [None]
